FAERS Safety Report 20112342 (Version 1)
Quarter: 2021Q4

REPORT INFORMATION
  Report Type: Spontaneous
  Country: FR (occurrence: FR)
  Receive Date: 20211125
  Receipt Date: 20211125
  Transmission Date: 20220303
  Serious: Yes (Other)
  Sender: FDA-Public Use
  Company Number: FR-ABBVIE-21K-056-4175309-00

PATIENT
  Sex: Female

DRUGS (3)
  1. VALPROATE SODIUM [Suspect]
     Active Substance: VALPROATE SODIUM
     Indication: Epilepsy
     Route: 048
     Dates: start: 1979
  2. VALPROATE SODIUM [Suspect]
     Active Substance: VALPROATE SODIUM
     Dosage: 200 MG OF DEPAKINE IN THE MORNING, 200 MG AT LUNCHTIME AND 400 MG IN THE EVENING.
     Route: 048
     Dates: start: 19790716
  3. VALPROATE SODIUM [Suspect]
     Active Substance: VALPROATE SODIUM
     Dosage: 400 MG OF DEPAKINE IN THE MORNING, 200 MG AT LUNCHTIME AND 400 MG IN THE EVENING
     Route: 048
     Dates: start: 19790727

REACTIONS (3)
  - Ectopic pregnancy [Unknown]
  - Epilepsy [Unknown]
  - Maternal exposure during pregnancy [Unknown]

NARRATIVE: CASE EVENT DATE: 19790101
